FAERS Safety Report 15982993 (Version 3)
Quarter: 2019Q1

REPORT INFORMATION
  Report Type: Spontaneous
  Country: CN (occurrence: CN)
  Receive Date: 20190219
  Receipt Date: 20190313
  Transmission Date: 20190418
  Serious: Yes (Hospitalization, Other)
  Sender: FDA-Public Use
  Company Number: PHHY2019CN017998

PATIENT
  Age: 59 Year
  Sex: Female

DRUGS (6)
  1. TEGRETOL [Suspect]
     Active Substance: CARBAMAZEPINE
     Indication: TRIGEMINAL NEURALGIA
     Dosage: 0.5 DF, BID
     Route: 065
  2. METRONIDAZOLE. [Concomitant]
     Active Substance: METRONIDAZOLE
     Indication: PRODUCT USED FOR UNKNOWN INDICATION
     Route: 065
  3. TEGRETOL [Suspect]
     Active Substance: CARBAMAZEPINE
     Dosage: 300 MG, BID
     Route: 065
  4. TEGRETOL [Suspect]
     Active Substance: CARBAMAZEPINE
     Dosage: 200 MG, BID
     Route: 065
  5. GLUCOSAMINE SULFATE [Concomitant]
     Active Substance: GLUCOSAMINE SULFATE
     Indication: PRODUCT USED FOR UNKNOWN INDICATION
     Route: 065
  6. TEGRETOL [Suspect]
     Active Substance: CARBAMAZEPINE
     Dosage: 1.5 DF, QD (HALF ONE TAB IN THE MORNING AND 1 TAB IN EVENING)
     Route: 065

REACTIONS (83)
  - Pyrexia [Unknown]
  - Scab [Unknown]
  - Face oedema [Unknown]
  - Rash [Unknown]
  - Skin erosion [Unknown]
  - Carbon dioxide increased [Unknown]
  - Oxygen saturation increased [Unknown]
  - White blood cell count decreased [Unknown]
  - Hypertension [Unknown]
  - Cerebral ischaemia [Unknown]
  - Inflammation [Unknown]
  - Lymphocyte percentage decreased [Unknown]
  - Ulcer [Unknown]
  - Eye oedema [Unknown]
  - Antinuclear antibody increased [Unknown]
  - Hepatitis B surface antibody positive [Unknown]
  - Hepatitis B core antibody positive [Unknown]
  - Lymphocyte count decreased [Unknown]
  - Dermatitis exfoliative [Recovering/Resolving]
  - Seizure [Unknown]
  - Palpitations [Recovered/Resolved]
  - Secretion discharge [Unknown]
  - Feeling abnormal [Unknown]
  - Lacrimation increased [Unknown]
  - Mouth haemorrhage [Unknown]
  - Eye ulcer [Unknown]
  - Mouth ulceration [Unknown]
  - Mental disorder [Unknown]
  - Thyroglobulin increased [Unknown]
  - Malaise [Unknown]
  - Somnolence [Unknown]
  - Blood albumin decreased [Unknown]
  - Globulins increased [Unknown]
  - Gingival swelling [Unknown]
  - Mucous membrane disorder [Unknown]
  - Skin lesion [Unknown]
  - Blood urea increased [Unknown]
  - Photophobia [Unknown]
  - Neutrophil count decreased [Unknown]
  - Rash vesicular [Unknown]
  - Skin exfoliation [Unknown]
  - Aspartate aminotransferase increased [Unknown]
  - Ageusia [Unknown]
  - Erythema [Unknown]
  - Red blood cell sedimentation rate increased [Unknown]
  - Calcium ionised decreased [Unknown]
  - Blister [Unknown]
  - Tenderness [Unknown]
  - Oropharyngeal pain [Unknown]
  - Blood lactic acid increased [Unknown]
  - Hepatic cyst [Unknown]
  - Alanine aminotransferase increased [Unknown]
  - Conjunctivitis allergic [Unknown]
  - Chest discomfort [Recovered/Resolved]
  - Conjunctival disorder [Unknown]
  - Albumin globulin ratio decreased [Unknown]
  - Ocular hyperaemia [Unknown]
  - Breath sounds abnormal [Unknown]
  - Blood fibrinogen increased [Unknown]
  - Natural killer cell activity decreased [Unknown]
  - Epstein-Barr virus antigen positive [Unknown]
  - Tri-iodothyronine decreased [Unknown]
  - Thyroid mass [Unknown]
  - Gingival pain [Unknown]
  - Hypogeusia [Unknown]
  - Stevens-Johnson syndrome [Unknown]
  - Drug hypersensitivity [Unknown]
  - Diabetes mellitus [Unknown]
  - Trigeminal nerve disorder [Unknown]
  - Hypoaesthesia [Unknown]
  - Neutrophil percentage increased [Unknown]
  - Pain [Unknown]
  - Dysphagia [Unknown]
  - Eye swelling [Unknown]
  - Conjunctival hyperaemia [Unknown]
  - Pneumonitis [Unknown]
  - Cholelithiasis [Unknown]
  - Blood creatine phosphokinase MB increased [Unknown]
  - C-reactive protein increased [Unknown]
  - PO2 increased [Unknown]
  - Blood glucose increased [Unknown]
  - Diastolic dysfunction [Unknown]
  - Blood sodium decreased [Unknown]

NARRATIVE: CASE EVENT DATE: 20181126
